FAERS Safety Report 8014470-3 (Version None)
Quarter: 2011Q4

REPORT INFORMATION
  Report Type: 
  Country: None (occurrence: None)
  Receive Date: 20111229
  Receipt Date: 20111222
  Transmission Date: 20120403
  Serious: Yes (Hospitalization)
  Sender: FDA-Public Use
  Company Number: SE-ROCHE-1016112

PATIENT
  Sex: Female
  Weight: 98 kg

DRUGS (15)
  1. ENALAPRIL MALEATE [Concomitant]
     Dates: start: 20110925, end: 20111126
  2. PRIMPERAN (SWEDEN) [Concomitant]
     Dates: start: 20111101
  3. PACLITAXEL [Suspect]
     Route: 042
     Dates: start: 20111206
  4. TRAMADOL HCL [Concomitant]
  5. ANDOLEX [Concomitant]
     Dates: start: 20111108
  6. CARBOPLATIN [Suspect]
     Indication: PRODUCT USED FOR UNKNOWN INDICATION
     Dosage: DATE OF LAST DOSE PRIOR TO SAE: 01/NOV/2011
     Route: 042
     Dates: start: 20111101
  7. ACETAMINOPHEN [Concomitant]
  8. AVASTIN [Suspect]
     Indication: PRODUCT USED FOR UNKNOWN INDICATION
     Dosage: DATE OF LAST DOSE PRIOR TO SAE: 01/NOV/2011
     Route: 042
     Dates: start: 20111101
  9. LAXOBERAL [Concomitant]
     Dates: start: 20111108
  10. FRAGMIN [Concomitant]
     Dosage: 5000
  11. OMEPRAZOLE [Concomitant]
     Dates: start: 20111005
  12. PACLITAXEL [Suspect]
     Indication: PRODUCT USED FOR UNKNOWN INDICATION
     Route: 042
     Dates: start: 20111101, end: 20111115
  13. CARBOPLATIN [Suspect]
     Dates: start: 20111206
  14. AVASTIN [Suspect]
     Route: 042
     Dates: start: 20111206
  15. LASIX [Concomitant]
     Dates: start: 20111031

REACTIONS (2)
  - FATIGUE [None]
  - BLOOD CREATININE INCREASED [None]
